FAERS Safety Report 8893185 (Version 1)
Quarter: 2012Q4

REPORT INFORMATION
  Report Type: Spontaneous
  Country: US (occurrence: None)
  Receive Date: 20121106
  Receipt Date: 20121106
  Transmission Date: 20130627
  Serious: Yes (Other)
  Sender: FDA-Public Use
  Company Number: None

PATIENT
  Age: 59 Year
  Sex: Female
  Weight: 65.77 kg

DRUGS (1)
  1. OXYCODONE AND ACETAMINOPHEN [Suspect]
     Indication: PAIN
     Dosage: 1 tablet every 4 hours every 4 hours po
     Route: 048
     Dates: start: 20121010, end: 20121105

REACTIONS (5)
  - Product substitution issue [None]
  - Inadequate analgesia [None]
  - Hypersomnia [None]
  - Headache [None]
  - Skin disorder [None]
